FAERS Safety Report 8478374-4 (Version None)
Quarter: 2012Q2

REPORT INFORMATION
  Report Type: 
  Country: None (occurrence: None)
  Receive Date: 20120629
  Receipt Date: 20120620
  Transmission Date: 20120825
  Serious: Yes (Life-Threatening)
  Sender: FDA-Public Use
  Company Number: JP-ROCHE-1080952

PATIENT
  Age: 65 Year

DRUGS (2)
  1. XELODA [Suspect]
     Indication: GASTRIC CANCER
     Dosage: 2 WEEKS ADMINISTRATION FOLLOWED BY 1 WEEK REST
     Route: 048
     Dates: start: 20120307, end: 20120516
  2. CISPLATIN [Concomitant]
     Indication: GASTRIC CANCER
     Route: 041
     Dates: start: 20120307

REACTIONS (1)
  - CEREBRAL INFARCTION [None]
